FAERS Safety Report 13963414 (Version 1)
Quarter: 2017Q3

REPORT INFORMATION
  Report Type: Spontaneous
  Country: US (occurrence: US)
  Receive Date: 20170913
  Receipt Date: 20170913
  Transmission Date: 20171128
  Serious: No
  Sender: FDA-Public Use
  Company Number: None

PATIENT
  Age: 47 Year
  Sex: Female
  Weight: 81 kg

DRUGS (1)
  1. MICONAZOLE 7 [Suspect]
     Active Substance: MICONAZOLE NITRATE
     Indication: VAGINAL INFECTION
     Dosage: ?          QUANTITY:1 APPLICATOR;?
     Route: 067
     Dates: start: 20170912, end: 20170913

REACTIONS (3)
  - Vulvovaginal burning sensation [None]
  - Pruritus [None]
  - Condition aggravated [None]

NARRATIVE: CASE EVENT DATE: 20170912
